FAERS Safety Report 19905369 (Version 1)
Quarter: 2021Q3

REPORT INFORMATION
  Report Type: Spontaneous
  Country: US (occurrence: US)
  Receive Date: 20210930
  Receipt Date: 20210930
  Transmission Date: 20211014
  Serious: Yes (Other)
  Sender: FDA-Public Use
  Company Number: US-PARATEK PHARMACEUTICALS, INC.-2021PTK00173

PATIENT
  Sex: Male

DRUGS (3)
  1. UNSPECIFIED MEDICATIONS [Concomitant]
     Active Substance: UNSPECIFIED INGREDIENT
  2. NUZYRA [Suspect]
     Active Substance: OMADACYCLINE
     Dosage: 300 MG, 1X/DAY
     Route: 048
     Dates: start: 20210916, end: 202109
  3. NUZYRA [Suspect]
     Active Substance: OMADACYCLINE
     Indication: LIMB INJURY
     Dosage: 450 MG, 1X/DAY
     Route: 048
     Dates: start: 20210914, end: 20210915

REACTIONS (4)
  - Hallucination [Recovered/Resolved]
  - Disorientation [Recovered/Resolved]
  - Abdominal discomfort [Recovered/Resolved]
  - Off label use [Recovered/Resolved]

NARRATIVE: CASE EVENT DATE: 202109
